FAERS Safety Report 5385647-0 (Version None)
Quarter: 2007Q3

REPORT INFORMATION
  Report Type: 
  Country: None (occurrence: None)
  Receive Date: 20070712
  Receipt Date: 20070702
  Transmission Date: 20080115
  Serious: Yes (Other)
  Sender: FDA-Public Use
  Company Number: GB-ASTRAZENECA-2007AC01219

PATIENT
  Age: 3 Day
  Weight: 5 kg

DRUGS (1)
  1. BUPIVACAINE [Suspect]
     Indication: ANALGESIA
     Route: 008

REACTIONS (2)
  - GRAND MAL CONVULSION [None]
  - OVERDOSE [None]
